FAERS Safety Report 8171995-8 (Version None)
Quarter: 2012Q1

REPORT INFORMATION
  Report Type: 
  Country: None (occurrence: None)
  Receive Date: 20120228
  Receipt Date: 20120222
  Transmission Date: 20120608
  Serious: Yes (Other)
  Sender: FDA-Public Use
  Company Number: US-PFIZER INC-2012006206

PATIENT

DRUGS (3)
  1. XANAX [Suspect]
     Indication: PANIC DISORDER
     Dosage: 0.5 MG, 3X/DAY PRN
     Dates: start: 20110901
  2. NEURONTIN [Suspect]
     Indication: NEUROPATHY PERIPHERAL
     Dosage: 300 MG, 4X/DAY
     Dates: start: 20111201
  3. ELAVIL [Suspect]
     Indication: DEPRESSION
     Dosage: 50 MG, AT BEDTIME
     Dates: start: 20111201

REACTIONS (4)
  - DEPRESSION [None]
  - BACK DISORDER [None]
  - FALL [None]
  - PAIN [None]
